FAERS Safety Report 9419697 (Version 1)
Quarter: 2013Q3

REPORT INFORMATION
  Report Type: Spontaneous
  Country: US (occurrence: None)
  Receive Date: 20130723
  Receipt Date: 20130723
  Transmission Date: 20140515
  Serious: Yes (Hospitalization)
  Sender: FDA-Public Use
  Company Number: None

PATIENT
  Age: 30 Year
  Sex: Male
  Weight: 70 kg

DRUGS (1)
  1. TACROLIMUS [Suspect]
     Indication: HEART TRANSPLANT REJECTION
     Route: 048
     Dates: start: 20130703, end: 20130711

REACTIONS (5)
  - Heart transplant rejection [None]
  - Immunosuppressant drug level increased [None]
  - Convulsion [None]
  - Grand mal convulsion [None]
  - Convulsive threshold lowered [None]
